FAERS Safety Report 12193760 (Version 1)
Quarter: 2016Q1

REPORT INFORMATION
  Report Type: Spontaneous
  Country: US (occurrence: US)
  Receive Date: 20160321
  Receipt Date: 20160321
  Transmission Date: 20160526
  Serious: No
  Sender: FDA-Public Use
  Company Number: US-GLENMARK PHARMACEUTICALS INC, USA.-2015GMK015507

PATIENT
  Age: 57 Year
  Sex: Male

DRUGS (5)
  1. AMPHETAMINE [Suspect]
     Active Substance: AMPHETAMINE
     Indication: HYPERSOMNIA-BULIMIA SYNDROME
     Dosage: UNK
  2. MODAFINIL. [Suspect]
     Active Substance: MODAFINIL
     Indication: HYPERSOMNIA-BULIMIA SYNDROME
     Dosage: UNK
  3. METHYLPHENIDATE. [Suspect]
     Active Substance: METHYLPHENIDATE
     Indication: HYPERSOMNIA-BULIMIA SYNDROME
     Dosage: UNK
  4. LITHIUM CARBONATE. [Suspect]
     Active Substance: LITHIUM CARBONATE
     Indication: HYPERSOMNIA-BULIMIA SYNDROME
     Dosage: UNK
  5. CLARITHROMYCIN. [Suspect]
     Active Substance: CLARITHROMYCIN
     Indication: HYPERSOMNIA-BULIMIA SYNDROME
     Dosage: UNK

REACTIONS (1)
  - Drug ineffective for unapproved indication [Unknown]
